FAERS Safety Report 4445116-9 (Version None)
Quarter: 2004Q3

REPORT INFORMATION
  Report Type: 
  Country: None (occurrence: None)
  Receive Date: 20040907
  Receipt Date: 20040824
  Transmission Date: 20050211
  Serious: Yes (Hospitalization)
  Sender: FDA-Public Use
  Company Number: 2004045505

PATIENT
  Age: 54 Year
  Sex: Female

DRUGS (4)
  1. LIPITOR [Suspect]
     Indication: HYPERLIPIDAEMIA
     Dosage: 5 MG (1 IN 1 D), ORAL
     Route: 048
     Dates: start: 20021201, end: 20040621
  2. PILSICAINIDE HYDROCHLORIDE (PILSICAINIDE) [Concomitant]
  3. CANDESARTAN CILEXETIL (CANDESARTAN CILEXETIL) [Concomitant]
  4. WARFARIN SODIUM [Concomitant]

REACTIONS (3)
  - HELICOBACTER INFECTION [None]
  - IDIOPATHIC THROMBOCYTOPENIC PURPURA [None]
  - INTERNATIONAL NORMALISED RATIO INCREASED [None]
